FAERS Safety Report 4711813-0 (Version None)
Quarter: 2005Q3

REPORT INFORMATION
  Report Type: 
  Country: None (occurrence: None)
  Receive Date: 20050712
  Receipt Date: 20050607
  Transmission Date: 20060218
  Serious: Yes (Other)
  Sender: FDA-Public Use
  Company Number: 2005AC00841

PATIENT
  Age: 76 Year
  Sex: Female

DRUGS (2)
  1. LISINOPRIL [Suspect]
     Indication: MYOCARDIAL INFARCTION
  2. LISINOPRIL [Suspect]

REACTIONS (3)
  - ESSENTIAL HYPERTENSION [None]
  - RENAL ARTERY ATHEROSCLEROSIS [None]
  - RENAL IMPAIRMENT [None]
